FAERS Safety Report 5468191-1 (Version None)
Quarter: 2007Q3

REPORT INFORMATION
  Report Type: 
  Country: None (occurrence: None)
  Receive Date: 20070926
  Receipt Date: 20070801
  Transmission Date: 20080115
  Serious: Yes (Hospitalization, Other)
  Sender: FDA-Public Use
  Company Number: US-PURDUE-USA_2007_0029221

PATIENT
  Sex: Female

DRUGS (1)
  1. OXYCONTIN [Suspect]
     Indication: ABDOMINAL PAIN
     Dates: start: 20010215, end: 20011223

REACTIONS (4)
  - DRUG DEPENDENCE [None]
  - HOSPITALISATION [None]
  - IMPAIRED WORK ABILITY [None]
  - RESPIRATORY ARREST [None]
